FAERS Safety Report 19998242 (Version 3)
Quarter: 2021Q4

REPORT INFORMATION
  Report Type: Spontaneous
  Country: US (occurrence: US)
  Receive Date: 20211026
  Receipt Date: 20211112
  Transmission Date: 20220303
  Serious: No
  Sender: FDA-Public Use
  Company Number: US-FRESENIUS KABI-FK202111449

PATIENT
  Age: 49 Year
  Sex: Female

DRUGS (3)
  1. PIPERACILLIN AND TAZOBACTAM [Suspect]
     Active Substance: PIPERACILLIN SODIUM\TAZOBACTAM SODIUM
     Indication: Product used for unknown indication
     Dosage: CONTINUOUS INFUSION TO RUN OVER 24 HOURS, POTENCY: 36 G IN 180 ML AND 4.5 G IN 180 ML
     Route: 042
     Dates: start: 202109
  2. DAPTOMYCIN [Suspect]
     Active Substance: DAPTOMYCIN
     Indication: Product used for unknown indication
     Dosage: VIA INTRAVENOUS PUSH (IVP)
     Route: 042
     Dates: start: 202109
  3. PIPERACILLIN SODIUM\TAZOBACTAM SODIUM [Suspect]
     Active Substance: PIPERACILLIN SODIUM\TAZOBACTAM SODIUM
     Indication: Product used for unknown indication
     Dosage: CONTINUOUS INFUSION TO RUN OVER 24 HOURS
     Route: 042
     Dates: start: 202109

REACTIONS (3)
  - Device occlusion [Recovered/Resolved]
  - Product administration interrupted [Recovered/Resolved]
  - Intentional product use issue [Unknown]

NARRATIVE: CASE EVENT DATE: 20210901
